FAERS Safety Report 14367234 (Version 1)
Quarter: 2018Q1

REPORT INFORMATION
  Report Type: Spontaneous
  Country: US (occurrence: US)
  Receive Date: 20180109
  Receipt Date: 20180109
  Transmission Date: 20180509
  Serious: No
  Sender: FDA-Public Use
  Company Number: US-JNJFOC-20171223132

PATIENT
  Age: 31 Year
  Sex: Female
  Weight: 33.57 kg

DRUGS (2)
  1. MOTRIN [Suspect]
     Active Substance: IBUPROFEN
     Indication: PAIN
     Route: 065
  2. MOTRIN [Suspect]
     Active Substance: IBUPROFEN
     Route: 065

REACTIONS (3)
  - Wrong technique in product usage process [None]
  - Wrong technique in product usage process [Unknown]
  - Incorrect dose administered [None]
